FAERS Safety Report 6696910-5 (Version None)
Quarter: 2010Q2

REPORT INFORMATION
  Report Type: 
  Country: None (occurrence: None)
  Receive Date: 20100426
  Receipt Date: 20100413
  Transmission Date: 20101027
  Serious: Yes (Other)
  Sender: FDA-Public Use
  Company Number: PHHY2010BR23230

PATIENT
  Age: 34 Year
  Sex: Male
  Weight: 89 kg

DRUGS (1)
  1. DIOVAN HCT [Suspect]
     Indication: HYPERTENSION
     Dosage: (160/25 MG) 1 TABLET DAILY IN THE MORNING
     Route: 048
     Dates: start: 20091001

REACTIONS (5)
  - PRURITUS [None]
  - SKIN DEPIGMENTATION [None]
  - SKIN EXFOLIATION [None]
  - SKIN HAEMORRHAGE [None]
  - SKIN INJURY [None]
